FAERS Safety Report 9315014 (Version 3)
Quarter: 2013Q3

REPORT INFORMATION
  Report Type: Spontaneous
  Country: US (occurrence: US)
  Receive Date: 20130529
  Receipt Date: 20130719
  Transmission Date: 20140515
  Serious: Yes (Disabling, Other)
  Sender: FDA-Public Use
  Company Number: US-009507513-0206USA02803

PATIENT
  Sex: Female
  Weight: 50.58 kg

DRUGS (6)
  1. FOSAMAX [Suspect]
     Indication: OSTEOPOROSIS
     Dosage: 10 MG, QD
     Route: 048
     Dates: start: 19980311, end: 20011030
  2. FOSAMAX [Suspect]
     Dosage: 70 MG, QW
     Route: 048
     Dates: start: 20011030, end: 200511
  3. PREMARIN [Concomitant]
     Indication: OSTEOPOROSIS
     Dosage: 0.625 MG, UNK
     Dates: start: 1991
  4. PROVERA [Concomitant]
     Indication: OSTEOPOROSIS
     Dates: start: 1991
  5. CALCIUM (UNSPECIFIED) [Concomitant]
     Dosage: 500 MG, BID
     Route: 048
     Dates: start: 19980311
  6. CALCIUM (UNSPECIFIED) [Concomitant]
     Dosage: 500 MG, QD
     Dates: end: 19980311

REACTIONS (52)
  - Joint arthroplasty [Unknown]
  - Jaw disorder [Not Recovered/Not Resolved]
  - Osteonecrosis of jaw [Not Recovered/Not Resolved]
  - Osteomyelitis [Unknown]
  - Exostosis [Unknown]
  - Oral surgery [Unknown]
  - Spinal pain [Unknown]
  - Oral cavity fistula [Not Recovered/Not Resolved]
  - Exostosis [Unknown]
  - Fistula discharge [Not Recovered/Not Resolved]
  - Dental caries [Unknown]
  - Impaired healing [Unknown]
  - Exostosis of jaw [Unknown]
  - Tooth abscess [Unknown]
  - Fibromyalgia [Unknown]
  - Trigeminal neuralgia [Unknown]
  - Adverse event [Not Recovered/Not Resolved]
  - Oral disorder [Unknown]
  - Lip neoplasm [Unknown]
  - Weight decreased [Unknown]
  - Syncope [Unknown]
  - Hypotension [Unknown]
  - Autonomic nervous system imbalance [Unknown]
  - Meniscus injury [Unknown]
  - Incontinence [Unknown]
  - Endometriosis [Unknown]
  - Hypoglycaemia [Unknown]
  - Drug intolerance [Unknown]
  - Syncope [Unknown]
  - Muscle strain [Unknown]
  - Facial neuralgia [Unknown]
  - Insomnia [Unknown]
  - Cough [Unknown]
  - Hypoxia [Unknown]
  - Abscess [Unknown]
  - Bone disorder [Unknown]
  - Tooth repair [Unknown]
  - Tooth repair [Unknown]
  - Artificial crown procedure [Unknown]
  - Artificial crown procedure [Unknown]
  - Artificial crown procedure [Unknown]
  - Tooth repair [Unknown]
  - Kidney infection [Unknown]
  - Arthritis [Unknown]
  - Varicose vein operation [Unknown]
  - Tooth fracture [Unknown]
  - Tooth disorder [Unknown]
  - Tooth impacted [Unknown]
  - Joint arthroplasty [Unknown]
  - Arthralgia [Unknown]
  - Pain in extremity [Unknown]
  - Musculoskeletal pain [Unknown]
